FAERS Safety Report 6936408-X (Version None)
Quarter: 2010Q3

REPORT INFORMATION
  Report Type: 
  Country: None (occurrence: None)
  Receive Date: 20100817
  Receipt Date: 20100519
  Transmission Date: 20110219
  Serious: No
  Sender: FDA-Public Use
  Company Number: WAES 1005USA02759

PATIENT
  Age: 45 Year
  Sex: Female
  Weight: 48.0813 kg

DRUGS (6)
  1. ISENTRESS [Suspect]
     Indication: HIV INFECTION
     Dosage: 400 MG/DAILY/PO
     Route: 048
     Dates: start: 20100101, end: 20100401
  2. COMBIVIR [Concomitant]
  3. KAPIDEX [Concomitant]
  4. LEXIVA [Concomitant]
  5. VICODIN [Concomitant]
  6. PREDNISONE [Concomitant]

REACTIONS (5)
  - BLOOD CHOLESTEROL INCREASED [None]
  - CARBON DIOXIDE INCREASED [None]
  - LOW DENSITY LIPOPROTEIN INCREASED [None]
  - LOWER EXTREMITY MASS [None]
  - PAIN IN EXTREMITY [None]
